FAERS Safety Report 21318687 (Version 1)
Quarter: 2022Q3

REPORT INFORMATION
  Report Type: Spontaneous
  Country: US (occurrence: US)
  Receive Date: 20220911
  Receipt Date: 20220911
  Transmission Date: 20221027
  Serious: No
  Sender: FDA-Public Use
  Company Number: US-SA-SAC20220830000538

PATIENT
  Age: 62 Year
  Sex: Male
  Weight: 86.18 kg

DRUGS (5)
  1. DUPIXENT [Suspect]
     Active Substance: DUPILUMAB
     Indication: Neurodermatitis
     Dosage: DUPIXENT 300 MG/2 ML PEN 2^S
     Route: 058
     Dates: start: 202206
  2. RINVOQ [Suspect]
     Active Substance: UPADACITINIB
  3. VITAMIIN A [Concomitant]
  4. VITAMINS NOS [Concomitant]
     Active Substance: VITAMINS
  5. MODERNA COVID-19 VACCINE [Concomitant]
     Active Substance: ELASOMERAN
     Indication: Immunisation

REACTIONS (3)
  - Skin haemorrhage [Unknown]
  - Scratch [Unknown]
  - Skin atrophy [Unknown]

NARRATIVE: CASE EVENT DATE: 20220101
